FAERS Safety Report 7163806-4 (Version None)
Quarter: 2010Q4

REPORT INFORMATION
  Report Type: 
  Country: None (occurrence: None)
  Receive Date: 20101215
  Receipt Date: 20100616
  Transmission Date: 20110411
  Serious: Yes (Other)
  Sender: FDA-Public Use
  Company Number: US-PFIZER INC-2010075742

PATIENT
  Sex: Male
  Weight: 72.56 kg

DRUGS (1)
  1. LYRICA [Suspect]
     Indication: FIBROMYALGIA
     Dosage: UNKNOWN
     Route: 048
     Dates: start: 20080801

REACTIONS (4)
  - BLADDER NEOPLASM [None]
  - DYSURIA [None]
  - HYPERTENSION [None]
  - NEOPLASM PROSTATE [None]
